FAERS Safety Report 4581336-0 (Version None)
Quarter: 2005Q1

REPORT INFORMATION
  Report Type: 
  Country: None (occurrence: None)
  Receive Date: 20050214
  Receipt Date: 20040930
  Transmission Date: 20050727
  Serious: No
  Sender: FDA-Public Use
  Company Number: US-GLAXOSMITHKLINE-A0527949A

PATIENT
  Age: 31 Year
  Sex: Female

DRUGS (3)
  1. LAMICTAL [Suspect]
     Indication: BIPOLAR DISORDER
     Dosage: 100MG TWICE PER DAY
     Route: 048
     Dates: start: 20040801
  2. ABILIFY [Concomitant]
  3. KLONOPIN [Concomitant]

REACTIONS (3)
  - ALOPECIA [None]
  - CONSTIPATION [None]
  - RESTLESS LEGS SYNDROME [None]
